FAERS Safety Report 7731248-6 (Version None)
Quarter: 2011Q3

REPORT INFORMATION
  Report Type: 
  Country: None (occurrence: None)
  Receive Date: 20110906
  Receipt Date: 20110415
  Transmission Date: 20111222
  Serious: No
  Sender: FDA-Public Use
  Company Number: US-BAYER-2011-033846

PATIENT
  Sex: Female

DRUGS (1)
  1. MIRENA [Suspect]
     Dosage: UNK
     Dates: start: 20110412

REACTIONS (4)
  - UNEVALUABLE EVENT [None]
  - HEADACHE [None]
  - DIZZINESS [None]
  - ABDOMINAL PAIN [None]
